FAERS Safety Report 7022720-5 (Version None)
Quarter: 2010Q3

REPORT INFORMATION
  Report Type: 
  Country: None (occurrence: None)
  Receive Date: 20100930
  Receipt Date: 20100924
  Transmission Date: 20110219
  Serious: Yes (Hospitalization)
  Sender: FDA-Public Use
  Company Number: A0836690A

PATIENT
  Age: 52 Year
  Sex: Male
  Weight: 101.8 kg

DRUGS (5)
  1. AVANDIA [Suspect]
     Dosage: 4MG PER DAY
     Route: 048
     Dates: start: 19980101, end: 20080101
  2. AVAPRO [Concomitant]
  3. ZOCOR [Concomitant]
  4. METFORMIN [Concomitant]
  5. AMARYL [Concomitant]

REACTIONS (3)
  - ARTERIOSCLEROSIS CORONARY ARTERY [None]
  - CARDIAC DISORDER [None]
  - MYOCARDIAL INFARCTION [None]
